FAERS Safety Report 5448403-0 (Version None)
Quarter: 2007Q3

REPORT INFORMATION
  Report Type: 
  Country: None (occurrence: None)
  Receive Date: 20070906
  Receipt Date: 20070820
  Transmission Date: 20080115
  Serious: No
  Sender: FDA-Public Use
  Company Number: TPA2007A01780

PATIENT
  Age: 54 Year
  Sex: Female
  Weight: 58.0604 kg

DRUGS (4)
  1. ROZEREM [Suspect]
     Indication: INSOMNIA
     Dosage: 4 MG, QHS, PER ORAL, 2 MG, QHW, PER ORAL
     Route: 048
     Dates: start: 20070818, end: 20070819
  2. ROZEREM [Suspect]
     Indication: INSOMNIA
     Dosage: 4 MG, QHS, PER ORAL, 2 MG, QHW, PER ORAL
     Route: 048
     Dates: start: 20070819, end: 20070820
  3. HYDROXYZINE [Concomitant]
  4. METOPROLOL SUCCINATE [Concomitant]

REACTIONS (2)
  - DYSPNOEA [None]
  - PARAESTHESIA [None]
